FAERS Safety Report 7385271 (Version 3)
Quarter: 2012Q4

REPORT INFORMATION
  Report Type: 
  Country: CA (occurrence: CA)
  Receive Date: 20100512
  Receipt Date: 20121111
  Transmission Date: 20130627
  Serious: Yes (Death, Hospitalization, Other)
  Sender: FDA-Public Use
  Company Number: PHHY2009CA24449

PATIENT
  Sex: Female

DRUGS (3)
  1. SANDOSTATIN LAR [Suspect]
     Indication: METASTATIC CARCINOID TUMOUR
     Dosage: 60 mg, QMO
     Route: 030
     Dates: start: 20061018
  2. SANDOSTATIN LAR [Suspect]
     Dosage: 80 mg, every 4 weeks
     Route: 030
  3. SANDOSTATIN LAR [Suspect]
     Dosage: 100 mg, QMO
     Route: 030
     Dates: end: 20100921

REACTIONS (11)
  - Death [Fatal]
  - Volume blood decreased [Unknown]
  - Protein total decreased [Unknown]
  - Fatigue [Unknown]
  - Asthenia [Unknown]
  - Diarrhoea [Unknown]
  - Blood pressure increased [Unknown]
  - Flushing [Recovering/Resolving]
  - Injection site pain [Unknown]
  - Headache [Unknown]
  - Heart rate decreased [Unknown]
